FAERS Safety Report 5271294-8 (Version None)
Quarter: 2007Q1

REPORT INFORMATION
  Report Type: 
  Country: None (occurrence: None)
  Receive Date: 20061214
  Receipt Date: 20060602
  Transmission Date: 20070707
  Serious: Yes (Hospitalization)
  Sender: FDA-Public Use
  Company Number: 2006070002

PATIENT
  Age: 41 Year
  Sex: Male
  Weight: 106.5953 kg

DRUGS (1)
  1. BEXTRA [Suspect]
     Indication: ARTHRITIS
     Dosage: 40 MG (20 MG,2 IN 1 D)
     Dates: start: 20030830, end: 20050114

REACTIONS (1)
  - MYOCARDIAL INFARCTION [None]
